FAERS Safety Report 9442984 (Version 1)
Quarter: 2013Q3

REPORT INFORMATION
  Report Type: Spontaneous
  Country: US (occurrence: None)
  Receive Date: 20130805
  Receipt Date: 20130805
  Transmission Date: 20140515
  Serious: Yes (Other)
  Sender: FDA-Public Use
  Company Number: None

PATIENT
  Age: 37 Year
  Sex: Female
  Weight: 90.72 kg

DRUGS (1)
  1. ZYRTEC [Suspect]
     Indication: RHINITIS ALLERGIC
     Dosage: 10 MG QD PO
     Route: 048
     Dates: start: 20120501, end: 20130710

REACTIONS (3)
  - Drug dose omission [None]
  - Pruritus [None]
  - Pruritus [None]
